FAERS Safety Report 6155204-7 (Version None)
Quarter: 2009Q2

REPORT INFORMATION
  Report Type: 
  Country: None (occurrence: None)
  Receive Date: 20090415
  Receipt Date: 20090407
  Transmission Date: 20091009
  Serious: Yes (Congenital Anomaly, Other)
  Sender: FDA-Public Use
  Company Number: GB-WYE-G03476909

PATIENT
  Age: 12 Week
  Sex: Male

DRUGS (7)
  1. EFFEXOR [Suspect]
     Indication: BIPOLAR DISORDER
     Dosage: 150 MG (FREQUENCY UNSPECIFIED)
     Route: 064
     Dates: start: 20050624
  2. FERROUS SULFATE TAB [Suspect]
     Route: 064
  3. AMOXICILLIN [Suspect]
     Route: 064
     Dates: start: 20080707, end: 20080714
  4. QUETIAPINE [Suspect]
     Indication: BIPOLAR DISORDER
     Dosage: 100 MG (FREQUENCY UNSPECIFIED)
     Route: 064
     Dates: start: 20080421, end: 20080616
  5. REBOXETINE [Suspect]
     Indication: BIPOLAR DISORDER
     Dosage: 4 MG (FREQUENCY UNSPECIFIED)
     Route: 064
     Dates: start: 20050101, end: 20080529
  6. CODEINE [Suspect]
     Dosage: 30 MG EVERY 1 PRN
     Route: 064
  7. PRIADEL [Suspect]
     Indication: BIPOLAR DISORDER
     Dosage: 1200 MG (FREQUENCY UNSPECIFIED)
     Route: 064
     Dates: start: 20050101

REACTIONS (2)
  - DRUG EXPOSURE DURING PREGNANCY [None]
  - PIERRE ROBIN SYNDROME [None]
